FAERS Safety Report 25191569 (Version 2)
Quarter: 2025Q2

REPORT INFORMATION
  Report Type: Report from Study
  Country: ES (occurrence: ES)
  Receive Date: 20250414
  Receipt Date: 20250523
  Transmission Date: 20250716
  Serious: Yes (Death, Hospitalization, Other)
  Sender: MYLAN
  Company Number: ES-SA-2025SA070594

PATIENT
  Age: 61 Year
  Sex: Female

DRUGS (14)
  1. POMALIDOMIDE [Suspect]
     Active Substance: POMALIDOMIDE
     Indication: Plasma cell myeloma refractory
     Dosage: 4 MILLIGRAM, QD
     Dates: start: 20240704, end: 20240724
  2. POMALIDOMIDE [Suspect]
     Active Substance: POMALIDOMIDE
     Dosage: 4 MILLIGRAM, QD
     Dates: start: 20240801, end: 20240821
  3. POMALIDOMIDE [Suspect]
     Active Substance: POMALIDOMIDE
     Dosage: 4 MILLIGRAM, QD
     Dates: start: 20241121, end: 20241211
  4. DEXAMETHASONE [Suspect]
     Active Substance: DEXAMETHASONE
     Indication: Plasma cell myeloma refractory
     Dosage: 40 MILLIGRAM, QW
     Dates: start: 20240801, end: 20240822
  5. DEXAMETHASONE [Suspect]
     Active Substance: DEXAMETHASONE
     Dosage: 40 MILLIGRAM, QW
     Dates: start: 20241121, end: 20241212
  6. ISATUXIMAB [Suspect]
     Active Substance: ISATUXIMAB
     Indication: Plasma cell myeloma refractory
     Dosage: 10 MILLIGRAM/KILOGRAM, BIWEEKLY (10 MG/KG, BIW  )
     Dates: start: 20240704, end: 20240718
  7. ISATUXIMAB [Suspect]
     Active Substance: ISATUXIMAB
     Dosage: 10 MILLIGRAM/KILOGRAM, BIWEEKLY (10 MG/KG, BIW)
     Dates: start: 20240801, end: 20240814
  8. ISATUXIMAB [Suspect]
     Active Substance: ISATUXIMAB
     Dosage: 10 MILLIGRAM/KILOGRAM, BIWEEKLY (10 MG/KG, BIW)
     Dates: start: 20241121, end: 20241205
  9. FENTANYL [Concomitant]
     Active Substance: FENTANYL
     Indication: Prophylaxis
  10. ASPIRIN [Concomitant]
     Active Substance: ASPIRIN
     Indication: Prophylaxis
  11. ACYCLOVIR [Concomitant]
     Active Substance: ACYCLOVIR
     Indication: Prophylaxis
  12. CHOLECALCIFEROL [Concomitant]
     Active Substance: CHOLECALCIFEROL
     Indication: Osteopenia
  13. CALCIUM PIDOLATE [Concomitant]
     Active Substance: CALCIUM PIDOLATE
     Indication: Rheumatoid arthritis
  14. RABEPRAZOLE SODIUM [Concomitant]
     Active Substance: RABEPRAZOLE SODIUM
     Indication: Prophylaxis

REACTIONS (2)
  - Respiratory syncytial virus infection [Fatal]
  - Hypokalaemia [Recovered/Resolved]

NARRATIVE: CASE EVENT DATE: 20241209
